FAERS Safety Report 13577759 (Version 2)
Quarter: 2017Q2

REPORT INFORMATION
  Report Type: Spontaneous
  Country: IT (occurrence: IT)
  Receive Date: 20170524
  Receipt Date: 20170627
  Transmission Date: 20170830
  Serious: Yes (Other)
  Sender: FDA-Public Use
  Company Number: IT-PFIZER INC-2017223537

PATIENT
  Age: 63 Year
  Sex: Female

DRUGS (1)
  1. DUAVIVE [Suspect]
     Active Substance: BAZEDOXIFENE ACETATE\ESTROGENS, CONJUGATED

REACTIONS (2)
  - Endometrial thickening [Unknown]
  - Uterine polyp [Unknown]
